FAERS Safety Report 6894113-2 (Version None)
Quarter: 2010Q3

REPORT INFORMATION
  Report Type: 
  Country: None (occurrence: None)
  Receive Date: 20100802
  Receipt Date: 20100723
  Transmission Date: 20110219
  Serious: Yes (Hospitalization, Other)
  Sender: FDA-Public Use
  Company Number: US-JNJFOC-20100110989

PATIENT
  Sex: Female
  Weight: 66.68 kg

DRUGS (40)
  1. DURAGESIC-100 [Suspect]
     Indication: BACK PAIN
     Dosage: NDC NUMBER: 50458-036-05
     Route: 062
  2. DURAGESIC-100 [Suspect]
     Dosage: NDC NUMBER: 50458-094-05
     Route: 062
  3. DURAGESIC-100 [Suspect]
     Route: 062
  4. AMBIEN CR [Concomitant]
     Indication: INSOMNIA
     Route: 065
  5. RESTORIL [Concomitant]
     Indication: SLEEP DISORDER
     Dosage: 1 HOUR OF SLEEP
     Route: 065
  6. TRAZODONE HCL [Concomitant]
     Indication: PRODUCT USED FOR UNKNOWN INDICATION
     Route: 065
  7. WELLBUTRIN XL [Concomitant]
     Indication: PRODUCT USED FOR UNKNOWN INDICATION
     Route: 048
  8. MOBIC [Concomitant]
     Indication: PRODUCT USED FOR UNKNOWN INDICATION
     Dosage: 1 TABLET BY MOUTH BID
     Route: 048
  9. SOMA [Concomitant]
     Indication: PRODUCT USED FOR UNKNOWN INDICATION
     Dosage: BID TO QID
     Route: 048
  10. XANAX [Concomitant]
     Indication: PRODUCT USED FOR UNKNOWN INDICATION
     Dosage: 1 TABLET BY MOUTH TID
     Route: 048
  11. SIMVASTATIN [Concomitant]
     Indication: PRODUCT USED FOR UNKNOWN INDICATION
     Route: 048
  12. TRIPLIX [Concomitant]
     Indication: PRODUCT USED FOR UNKNOWN INDICATION
     Route: 048
  13. OXYCODONE HCL AND ACETAMINOPHEN [Concomitant]
     Indication: PAIN
     Dosage: 10MG/650MG TABLET, 1 TABLET BY MOUTH Q 6HOURS PRN
     Route: 048
  14. CYMBALTA [Concomitant]
     Indication: PRODUCT USED FOR UNKNOWN INDICATION
     Route: 048
  15. DIOVAN HCT [Concomitant]
     Indication: CARDIAC DISORDER
     Dosage: (60MG) 125 MG
     Route: 065
  16. NASACORT AQ [Concomitant]
     Indication: PRODUCT USED FOR UNKNOWN INDICATION
     Dosage: 1 SPRAY(S) IN EACH NOSTRIL
     Route: 045
  17. PROMETHAZINE HCL [Concomitant]
     Indication: NAUSEA
     Dosage: 1 TABLET Q 4-6 HOURS PRN
     Route: 048
  18. TRICOR [Concomitant]
     Indication: PRODUCT USED FOR UNKNOWN INDICATION
     Route: 065
  19. BACTRIM DS [Concomitant]
     Indication: PRODUCT USED FOR UNKNOWN INDICATION
     Dosage: 160/180 MG
     Route: 065
  20. DOXYCYCLINE [Concomitant]
     Indication: PRODUCT USED FOR UNKNOWN INDICATION
     Route: 065
  21. CLARITIN-D [Concomitant]
     Indication: PRODUCT USED FOR UNKNOWN INDICATION
     Route: 048
  22. LIDODERM [Concomitant]
     Indication: MUSCLE SPASMS
     Dosage: 1 QD LEAVE ON 12- 24 HOURS
     Route: 065
  23. LIDODERM [Concomitant]
     Indication: ARTHRITIS
     Dosage: 1 QD LEAVE ON 12- 24 HOURS
     Route: 065
  24. NEXIUM [Concomitant]
     Indication: GASTROOESOPHAGEAL REFLUX DISEASE
     Route: 048
  25. AMBIEN [Concomitant]
     Indication: PRODUCT USED FOR UNKNOWN INDICATION
     Route: 065
  26. KLONOPIN [Concomitant]
     Indication: PRODUCT USED FOR UNKNOWN INDICATION
     Dosage: 1 TABLET(S) BY MOUTH TID
     Route: 048
  27. HYDROCHLOROTHIAZIDE [Concomitant]
     Indication: DIURETIC THERAPY
     Route: 065
  28. FLEXERIL [Concomitant]
     Indication: PRODUCT USED FOR UNKNOWN INDICATION
     Dosage: TID
     Route: 048
  29. SEROQUEL [Concomitant]
     Indication: PRODUCT USED FOR UNKNOWN INDICATION
     Route: 048
  30. LUNESTA [Concomitant]
     Indication: INSOMNIA
     Dosage: QHS
     Route: 048
  31. VALIUM [Concomitant]
     Indication: PRODUCT USED FOR UNKNOWN INDICATION
     Route: 048
  32. PERCOCET [Concomitant]
     Indication: PAIN
     Dosage: 7.5 MG/325MG, 1 TABLET BY MOUTH
     Route: 048
  33. EFFEXOR XR [Concomitant]
     Indication: PRODUCT USED FOR UNKNOWN INDICATION
     Route: 065
  34. NORCO [Concomitant]
     Indication: PRODUCT USED FOR UNKNOWN INDICATION
     Dosage: 7.5MG/325 MG TABLET
     Route: 048
  35. LEXAPRO [Concomitant]
     Indication: PRODUCT USED FOR UNKNOWN INDICATION
     Route: 048
  36. DIAZEPAM [Concomitant]
     Indication: PRODUCT USED FOR UNKNOWN INDICATION
     Route: 048
  37. ROBAXIN [Concomitant]
     Indication: MUSCLE SPASMS
     Dosage: Q 4-6 HOUR PRN
     Route: 048
  38. NEURONTIN [Concomitant]
     Indication: PRODUCT USED FOR UNKNOWN INDICATION
     Route: 048
  39. OXYCONTIN [Concomitant]
     Indication: PRODUCT USED FOR UNKNOWN INDICATION
     Route: 048
  40. ESTRADIOL, NORETHINDRONE ACETATE [Concomitant]
     Indication: PRODUCT USED FOR UNKNOWN INDICATION
     Dosage: 1 MG/0.5 MG
     Route: 065

REACTIONS (8)
  - BACK PAIN [None]
  - BREAKTHROUGH PAIN [None]
  - DEPRESSION [None]
  - DRUG ADMINISTERED AT INAPPROPRIATE SITE [None]
  - DRUG INEFFECTIVE [None]
  - INADEQUATE ANALGESIA [None]
  - INTERVERTEBRAL DISC DEGENERATION [None]
  - PRODUCT ADHESION ISSUE [None]
